FAERS Safety Report 20554635 (Version 2)
Quarter: 2022Q1

REPORT INFORMATION
  Report Type: Spontaneous
  Country: GB (occurrence: GB)
  Receive Date: 20220304
  Receipt Date: 20220310
  Transmission Date: 20220423
  Serious: Yes (Life-Threatening, Hospitalization, Other)
  Sender: FDA-Public Use
  Company Number: GB-MHRA-MED-202202161705572370-OLFAC

PATIENT
  Age: 40 Year
  Sex: Female
  Weight: 63 kg

DRUGS (2)
  1. PACLITAXEL [Suspect]
     Active Substance: PACLITAXEL
     Indication: Breast cancer
     Dosage: 152 MG
     Route: 042
     Dates: start: 20220210, end: 20220210
  2. SODIUM CHLORIDE [Concomitant]
     Active Substance: SODIUM CHLORIDE
     Indication: Medication dilution
     Dosage: UNK

REACTIONS (5)
  - Anaphylactic reaction [Recovered/Resolved]
  - Back pain [Unknown]
  - Malaise [Unknown]
  - Paraesthesia oral [Unknown]
  - Tachycardia [Unknown]

NARRATIVE: CASE EVENT DATE: 20220210
